FAERS Safety Report 8999780 (Version 1)
Quarter: 2013Q1

REPORT INFORMATION
  Report Type: Report from Study
  Country: US (occurrence: US)
  Receive Date: 20130102
  Receipt Date: 20130102
  Transmission Date: 20140127
  Serious: Yes (Other)
  Sender: FDA-Public Use
  Company Number: US-ROCHE-1075710

PATIENT
  Age: 49 None
  Sex: Male
  Weight: 100.33 kg

DRUGS (3)
  1. VEMURAFENIB [Suspect]
     Indication: METASTATIC MALIGNANT MELANOMA
     Route: 048
     Dates: start: 201204
  2. VEMURAFENIB [Suspect]
     Route: 048
  3. ADVIL [Concomitant]
     Route: 065

REACTIONS (18)
  - Brain operation [Unknown]
  - Local swelling [Unknown]
  - Feeling cold [Unknown]
  - Blister [Unknown]
  - Swelling [Unknown]
  - Rash generalised [Unknown]
  - Abasia [Unknown]
  - Musculoskeletal disorder [Unknown]
  - Blister [Unknown]
  - Arthralgia [Not Recovered/Not Resolved]
  - Corneal disorder [Not Recovered/Not Resolved]
  - Pneumonia [Recovered/Resolved]
  - Photosensitivity reaction [Unknown]
  - Corneal erosion [Unknown]
  - Vision blurred [Not Recovered/Not Resolved]
  - Dry skin [Recovering/Resolving]
  - Sunburn [Recovered/Resolved]
  - Myalgia [Unknown]
